FAERS Safety Report 5741887-X (Version None)
Quarter: 2008Q2

REPORT INFORMATION
  Report Type: 
  Country: None (occurrence: None)
  Receive Date: 20080519
  Receipt Date: 20080507
  Transmission Date: 20081010
  Serious: Yes (Death)
  Sender: FDA-Public Use
  Company Number: US-JNJFOC-20080404177

PATIENT
  Sex: Male
  Weight: 74.39 kg

DRUGS (7)
  1. LEVAQUIN [Suspect]
     Indication: DRUG USE FOR UNKNOWN INDICATION
     Route: 048
  2. DURAGESIC-100 [Concomitant]
     Route: 062
  3. HYDROCODONE BIT [Concomitant]
     Indication: PAIN
     Route: 048
  4. ATIVAN [Concomitant]
     Indication: NAUSEA
     Route: 048
  5. GLYBURIDE [Concomitant]
     Route: 048
  6. MIRALAX [Concomitant]
     Route: 048
  7. ACETAMINOPHEN [Concomitant]
     Indication: PAIN
     Route: 048

REACTIONS (1)
  - DEATH [None]
